FAERS Safety Report 5168155-1 (Version None)
Quarter: 2006Q4

REPORT INFORMATION
  Report Type: 
  Country: None (occurrence: None)
  Receive Date: 20061129
  Receipt Date: 20061116
  Transmission Date: 20070319
  Serious: Yes (Hospitalization)
  Sender: FDA-Public Use
  Company Number: 2006126040

PATIENT
  Age: 7 Year
  Sex: Female

DRUGS (5)
  1. DOXORUBICIN HYDROCHLORIDE FOR INJECTION (DOXORUBICIN HYDR8OCHLORIDE) [Suspect]
     Indication: ACUTE LYMPHOCYTIC LEUKAEMIA
     Dosage: INTRAVENOUS
     Route: 042
     Dates: start: 20050101
  2. METHOTREXATE [Suspect]
     Indication: ACUTE LYMPHOCYTIC LEUKAEMIA
     Dosage: INTRAVENOUS
     Route: 042
     Dates: start: 20050101
  3. ASPARAGINASE (ASPARAGINASE) [Suspect]
     Indication: ACUTE LYMPHOCYTIC LEUKAEMIA
     Dosage: INTRAMUSCULAR
     Route: 030
     Dates: start: 20050101
  4. DEXAMETHASONE TAB [Suspect]
     Indication: ACUTE LYMPHOCYTIC LEUKAEMIA
     Dosage: ORAL
     Route: 048
     Dates: start: 20050101
  5. VINCRISTINE [Suspect]
     Indication: ACUTE LYMPHOCYTIC LEUKAEMIA
     Dosage: INTRAVENOUS
     Route: 042
     Dates: start: 20050101

REACTIONS (9)
  - ABDOMINAL PAIN UPPER [None]
  - CAECITIS [None]
  - CONSTIPATION [None]
  - DIARRHOEA [None]
  - GASTROENTERITIS VIRAL [None]
  - INTUSSUSCEPTION [None]
  - NAUSEA [None]
  - ORAL INTAKE REDUCED [None]
  - VOMITING [None]
